FAERS Safety Report 5020928-1 (Version None)
Quarter: 2006Q2

REPORT INFORMATION
  Report Type: 
  Country: None (occurrence: None)
  Receive Date: 20060608
  Receipt Date: 20060605
  Transmission Date: 20061013
  Serious: Yes (Other)
  Sender: FDA-Public Use
  Company Number: PHEH2006US07289

PATIENT
  Sex: Female

DRUGS (1)
  1. ENABLEX [Suspect]
     Indication: HYPERTONIC BLADDER
     Dosage: UNK, UNK
     Dates: start: 20060401, end: 20060401

REACTIONS (7)
  - ASTHENIA [None]
  - BLADDER DISORDER [None]
  - CATHETER PLACEMENT [None]
  - CONSTIPATION [None]
  - DIZZINESS [None]
  - HALLUCINATION [None]
  - URINARY RETENTION [None]
